FAERS Safety Report 10306005 (Version 2)
Quarter: 2014Q3

REPORT INFORMATION
  Report Type: Spontaneous
  Country: IT (occurrence: IT)
  Receive Date: 20140715
  Receipt Date: 20140731
  Transmission Date: 20150326
  Serious: Yes (Other)
  Sender: FDA-Public Use
  Company Number: IT-ABBVIE-14P-083-1259651-00

PATIENT
  Sex: Male

DRUGS (1)
  1. ENANTONE LP [Suspect]
     Active Substance: LEUPROLIDE ACETATE
     Indication: PRODUCT USED FOR UNKNOWN INDICATION
     Dosage: REGIMEN # 1
     Route: 058

REACTIONS (3)
  - Prostatic specific antigen abnormal [Unknown]
  - Wrong technique in drug usage process [Unknown]
  - Blood testosterone abnormal [Unknown]
